FAERS Safety Report 8261731-9 (Version None)
Quarter: 2012Q2

REPORT INFORMATION
  Report Type: 
  Country: None (occurrence: None)
  Receive Date: 20120405
  Receipt Date: 20120328
  Transmission Date: 20120825
  Serious: Yes (Other)
  Sender: FDA-Public Use
  Company Number: US-BAYER-2011-074192

PATIENT
  Age: 25 Year
  Sex: Female
  Weight: 70.295 kg

DRUGS (14)
  1. BELLADONNA AND PHENOBARBITONE [Concomitant]
     Indication: PAIN
     Dosage: 1 TABLET 30 MINUTES BEFORE MEALS AND AT BEDTIME
     Route: 048
  2. NEXIUM [Concomitant]
  3. TYLENOL [Concomitant]
  4. MAGNESIUM HYDROXIDE TAB [Concomitant]
  5. ACETAMINOPHEN [Concomitant]
  6. PERCOCET [Concomitant]
  7. NUVARING [Concomitant]
  8. ONDANSETRON [Concomitant]
  9. YASMIN [Suspect]
     Indication: CONTRACEPTION
     Dosage: UNK
     Dates: start: 20100507, end: 20100930
  10. DONNATAL [Concomitant]
  11. ULTRAM [Concomitant]
     Indication: PAIN
     Dosage: UNK
     Route: 048
  12. MYLANTA [Concomitant]
  13. TRAMADOL HCL [Concomitant]
     Indication: PAIN
  14. ZOFRAN [Concomitant]
     Indication: VOMITING

REACTIONS (3)
  - CHOLECYSTITIS CHRONIC [None]
  - CHOLELITHIASIS [None]
  - EMOTIONAL DISTRESS [None]
